FAERS Safety Report 8812872 (Version 1)
Quarter: 2012Q4

REPORT INFORMATION
  Report Type: 
  Country: US (occurrence: US)
  Receive Date: 20120927
  Receipt Date: 20120927
  Transmission Date: 20130627
  Serious: No
  Sender: FDA-Public Use
  Company Number: US-AMGEN-USASP2012042853

PATIENT
  Age: 56 Year
  Sex: Female

DRUGS (2)
  1. XGEVA [Suspect]
     Indication: BREAST CANCER
     Dosage: UNK
  2. FASLODEX [Concomitant]
     Indication: BREAST CANCER

REACTIONS (1)
  - Palpitations [Unknown]
